FAERS Safety Report 20941909 (Version 1)
Quarter: 2022Q2

REPORT INFORMATION
  Report Type: Report from Study
  Country: US (occurrence: US)
  Receive Date: 20220610
  Receipt Date: 20220610
  Transmission Date: 20220721
  Serious: Yes (Death)
  Sender: FDA-Public Use
  Company Number: US-ABBVIE-22K-163-4427501-00

PATIENT
  Sex: Male

DRUGS (5)
  1. VENCLEXTA [Suspect]
     Active Substance: VENETOCLAX
     Indication: Non-Hodgkin^s lymphoma
     Dosage: 50 MG?TAKE ONE 50MG TABLET ALONG WITH TWO 10MG TABLETS BY MOUTH ONCE DAILY
     Route: 048
  2. VENCLEXTA [Suspect]
     Active Substance: VENETOCLAX
     Indication: Type 2 diabetes mellitus
     Dosage: 10 MG?TAKE 1 TABLET BY MOUTH EVERY DAY
     Route: 048
  3. VENCLEXTA [Suspect]
     Active Substance: VENETOCLAX
     Indication: Essential hypertension
  4. VENCLEXTA [Suspect]
     Active Substance: VENETOCLAX
     Indication: Haemorrhoids
  5. VENCLEXTA [Suspect]
     Active Substance: VENETOCLAX
     Indication: Hypothyroidism

REACTIONS (2)
  - Death [Fatal]
  - Off label use [Unknown]
